FAERS Safety Report 7146878 (Version 42)
Quarter: 2015Q1

REPORT INFORMATION
  Report Type: Report from Study
  Country: CA (occurrence: CA)
  Receive Date: 20091012
  Receipt Date: 20150317
  Transmission Date: 20150721
  Serious: Yes (Hospitalization, Other)
  Sender: FDA-Public Use
  Company Number: PHMT2006CA01168

PATIENT
  Age: 64 Year
  Sex: Female

DRUGS (11)
  1. COUMADIN [Concomitant]
     Active Substance: WARFARIN SODIUM
     Indication: PRODUCT USED FOR UNKNOWN INDICATION
     Route: 065
  2. SANDOSTATIN LAR DEPOT [Suspect]
     Active Substance: OCTREOTIDE ACETATE
     Indication: GLUCAGONOMA
     Dosage: 30 MG, EVERY 2 WEEKS
     Route: 030
     Dates: start: 20030120
  3. PAXIL [Concomitant]
     Active Substance: PAROXETINE HYDROCHLORIDE
     Indication: PRODUCT USED FOR UNKNOWN INDICATION
     Route: 065
  4. ZYPREXA [Concomitant]
     Active Substance: OLANZAPINE
     Indication: PRODUCT USED FOR UNKNOWN INDICATION
     Route: 065
  5. SANDOSTATIN LAR DEPOT [Suspect]
     Active Substance: OCTREOTIDE ACETATE
     Dosage: 30 MG, BIW
     Route: 030
  6. SANDOSTATIN LAR DEPOT [Suspect]
     Active Substance: OCTREOTIDE ACETATE
     Dosage: 30 MG, EVERY 2 WEEKS
     Route: 030
  7. SANDOSTATIN LAR DEPOT [Suspect]
     Active Substance: OCTREOTIDE ACETATE
     Dosage: 30 MG, QMO
     Route: 030
  8. 5-FU [Concomitant]
     Active Substance: FLUOROURACIL
     Indication: PRODUCT USED FOR UNKNOWN INDICATION
     Route: 065
  9. ALTACE [Concomitant]
     Active Substance: RAMIPRIL
     Indication: PRODUCT USED FOR UNKNOWN INDICATION
     Route: 065
  10. INSULIN [Concomitant]
     Active Substance: INSULIN NOS
     Indication: PRODUCT USED FOR UNKNOWN INDICATION
     Route: 065
  11. SIMVASTATIN. [Concomitant]
     Active Substance: SIMVASTATIN
     Indication: PRODUCT USED FOR UNKNOWN INDICATION
     Route: 065

REACTIONS (41)
  - Generalised oedema [Unknown]
  - Confusional state [Unknown]
  - Back pain [Not Recovered/Not Resolved]
  - Infection [Unknown]
  - Dyspnoea [Unknown]
  - Neoplasm [Unknown]
  - White blood cell count decreased [Unknown]
  - Stomatitis [Unknown]
  - Mobility decreased [Unknown]
  - Syncope [Unknown]
  - Asthenia [Unknown]
  - Hypoglycaemia [Unknown]
  - Venous stenosis [Unknown]
  - Back injury [Unknown]
  - Platelet count decreased [Unknown]
  - Malignant neoplasm progression [Unknown]
  - Pruritus generalised [Unknown]
  - Lymphocyte count decreased [Unknown]
  - Blood pressure increased [Unknown]
  - Fall [Unknown]
  - Diarrhoea [Unknown]
  - Incoherent [Unknown]
  - Urosepsis [Unknown]
  - Abdominal discomfort [Unknown]
  - Metastases to spine [Unknown]
  - Neutrophil count decreased [Unknown]
  - Nasopharyngitis [Unknown]
  - Mass [Unknown]
  - Dizziness [Not Recovered/Not Resolved]
  - Heart rate increased [Unknown]
  - Urinary tract infection [Unknown]
  - Pain [Unknown]
  - Haemoglobin decreased [Unknown]
  - Tooth fracture [Unknown]
  - Blood pressure decreased [Unknown]
  - Decreased appetite [Unknown]
  - Peripheral swelling [Recovering/Resolving]
  - Dehydration [Unknown]
  - Lumbar vertebral fracture [Unknown]
  - Chest pain [Not Recovered/Not Resolved]
  - Blood glucose fluctuation [Unknown]

NARRATIVE: CASE EVENT DATE: 20060524
